FAERS Safety Report 19262446 (Version 7)
Quarter: 2022Q1

REPORT INFORMATION
  Report Type: Spontaneous
  Country: US (occurrence: US)
  Receive Date: 20210517
  Receipt Date: 20220302
  Transmission Date: 20220423
  Serious: No
  Sender: FDA-Public Use
  Company Number: US-SA-SAC20210513001236

PATIENT
  Age: 61 Year
  Sex: Female

DRUGS (2)
  1. DUPIXENT [Suspect]
     Active Substance: DUPILUMAB
     Indication: Rash
     Dosage: UNK
     Route: 065
     Dates: start: 2020
  2. DUPIXENT [Suspect]
     Active Substance: DUPILUMAB
     Indication: Epidermolysis
     Dosage: 300 MG, QOW
     Route: 058
     Dates: start: 20210511

REACTIONS (9)
  - Dry eye [Not Recovered/Not Resolved]
  - Lacrimal structure injury [Unknown]
  - Hordeolum [Not Recovered/Not Resolved]
  - Eye infection [Unknown]
  - Pain in extremity [Unknown]
  - Eye swelling [Not Recovered/Not Resolved]
  - Abdominal pain upper [Unknown]
  - Adverse drug reaction [Unknown]
  - Product use in unapproved indication [Unknown]

NARRATIVE: CASE EVENT DATE: 20200101
